FAERS Safety Report 8441645-1 (Version None)
Quarter: 2012Q2

REPORT INFORMATION
  Report Type: 
  Country: None (occurrence: None)
  Receive Date: 20120323
  Receipt Date: 20110606
  Transmission Date: 20120825
  Serious: Yes (Other)
  Sender: FDA-Public Use
  Company Number: 163-21880-11062009

PATIENT
  Age: 55 Year
  Sex: Female
  Weight: 58.9676 kg

DRUGS (12)
  1. CELEBREX [Concomitant]
  2. ESTROGEN/ TESTOSTERONE (ESTROGEN W/TESTOSTERONE) (UNKNOWN) [Concomitant]
  3. ZOCOR (SIMVASTATIN) (UNKNOWN) [Concomitant]
  4. ZYRTEC [Concomitant]
  5. VITAMIN D(ERGOCALCIFEROL) (UNKNOWN) [Concomitant]
  6. REVLIMID [Suspect]
     Indication: MULTIPLE MYELOMA
     Dosage: 15 MG, DAILY X 21 DAYS, PO
     Route: 048
     Dates: start: 20110503
  7. PROGESTERONE (PRGESTERONE) (CREAM) [Concomitant]
  8. ASPIRIN [Concomitant]
  9. MVI (MVI) (UNKNOWN) [Concomitant]
  10. PLAQUENIL (HYDROXYCHLOROQUINE PHOSPHATE) (UNKNOWN) [Concomitant]
  11. FLEXERIL [Concomitant]
  12. DEXAMETHASONE [Concomitant]

REACTIONS (1)
  - PANCYTOPENIA [None]
